FAERS Safety Report 4546640-0 (Version None)
Quarter: 2005Q1

REPORT INFORMATION
  Report Type: 
  Country: None (occurrence: None)
  Receive Date: 20050103
  Receipt Date: 20041214
  Transmission Date: 20050727
  Serious: Yes (Death)
  Sender: FDA-Public Use
  Company Number: US_0412109254

PATIENT
  Sex: Female

DRUGS (4)
  1. GEMCITABINE HYDROCHLORIDE-IV (GEMCITABINE) [Suspect]
     Indication: BREAST CANCER
     Dosage: 1000 MG/M2 EVERY OTHER WEEK
     Route: 050
  2. PACLITAXEL [Concomitant]
  3. TRANSTUZUMAB [Concomitant]
  4. DEXAMETHASONE [Concomitant]

REACTIONS (1)
  - SEPTIC SHOCK [None]
